FAERS Safety Report 10420480 (Version 1)
Quarter: 2014Q3

REPORT INFORMATION
  Report Type: Spontaneous
  Country: US (occurrence: None)
  Receive Date: 20140707
  Receipt Date: 20140707
  Transmission Date: 20150326
  Serious: Yes (Disabling)
  Sender: FDA-Public Use
  Company Number: US-SEPTODONT-201301124

PATIENT
  Age: 62 Year
  Sex: Male
  Weight: 79.5 kg

DRUGS (1)
  1. ARTICAINE HYDROCHLORIDE, EPINEPHRINE BITARTRATE [Suspect]
     Active Substance: ARTICAINE HYDROCHLORIDE\EPINEPHRINE BITARTRATE
     Indication: LOCAL ANAESTHESIA
     Route: 004
     Dates: start: 20120827, end: 20120827

REACTIONS (3)
  - Paraesthesia oral [None]
  - Dysgeusia [None]
  - Oral pain [None]

NARRATIVE: CASE EVENT DATE: 20120627
